FAERS Safety Report 10050374 (Version 1)
Quarter: 2014Q2

REPORT INFORMATION
  Report Type: Spontaneous
  Country: BE (occurrence: BE)
  Receive Date: 20140401
  Receipt Date: 20140401
  Transmission Date: 20141212
  Serious: Yes (Other)
  Sender: FDA-Public Use
  Company Number: BE-B.I. PHARMACEUTICALS,INC./RIDGEFIELD-2014-BI-13828BL

PATIENT
  Sex: Female

DRUGS (13)
  1. TRAJENTA [Suspect]
     Indication: TYPE 2 DIABETES MELLITUS
     Route: 065
     Dates: start: 20131223
  2. UNIDIAMICRON [Concomitant]
     Indication: TYPE 2 DIABETES MELLITUS
     Dosage: 1 NR
     Route: 065
  3. METFORMAX [Concomitant]
     Indication: TYPE 2 DIABETES MELLITUS
     Dosage: 1 NR
     Route: 065
  4. MARCOUMAR [Concomitant]
     Indication: ATRIAL FIBRILLATION
     Route: 065
  5. CELEBREX [Concomitant]
     Route: 065
  6. D-CURE [Concomitant]
     Route: 065
  7. CALCIUM [Concomitant]
     Route: 065
  8. DOLZAM [Concomitant]
     Route: 065
  9. EMCORETIC [Concomitant]
     Route: 065
  10. PANADOL [Concomitant]
     Route: 065
  11. SIMVASTATIN [Concomitant]
     Route: 065
  12. XANAX [Concomitant]
     Route: 065
  13. ZOLPIDEM [Concomitant]
     Route: 065

REACTIONS (4)
  - Hepatitis toxic [Unknown]
  - Fatigue [Unknown]
  - Haematuria [Unknown]
  - Jaundice [Unknown]
